FAERS Safety Report 9721870 (Version 1)
Quarter: 2013Q4

REPORT INFORMATION
  Report Type: Spontaneous
  Country: US (occurrence: US)
  Receive Date: 20131201
  Receipt Date: 20131201
  Transmission Date: 20140711
  Serious: No
  Sender: FDA-Public Use
  Company Number: US-009507513-1312USA000032

PATIENT
  Age: 29 Year
  Sex: Female

DRUGS (2)
  1. CLARITIN-D-24 [Suspect]
     Indication: RESPIRATORY TRACT CONGESTION
     Dosage: UNK, UNKNOWN
     Route: 048
  2. CLARITIN-D-24 [Suspect]
     Indication: HYPERSENSITIVITY

REACTIONS (1)
  - Headache [Unknown]
